FAERS Safety Report 23962488 (Version 1)
Quarter: 2024Q2

REPORT INFORMATION
  Report Type: Spontaneous
  Country: US (occurrence: None)
  Receive Date: 20240611
  Receipt Date: 20240611
  Transmission Date: 20240715
  Serious: Yes (unspecified)
  Sender: FDA-Public Use
  Company Number: None

PATIENT
  Age: 65 Year
  Sex: Male

DRUGS (1)
  1. BRAFTOVI [Suspect]
     Active Substance: ENCORAFENIB
     Indication: Malignant melanoma
     Dosage: FREQUENCY : DAILY;?
     Route: 048

REACTIONS (5)
  - Pigmentation disorder [None]
  - Alopecia [None]
  - Fatigue [None]
  - Pain [None]
  - Muscle atrophy [None]
